FAERS Safety Report 8905234 (Version 1)
Quarter: 2012Q4

REPORT INFORMATION
  Report Type: 
  Country: US (occurrence: US)
  Receive Date: 20121113
  Receipt Date: 20121113
  Transmission Date: 20130627
  Serious: Yes (Hospitalization, Other)
  Sender: FDA-Public Use
  Company Number: US-009507513-1211USA000064

PATIENT
  Sex: Female

DRUGS (4)
  1. RIBAVIRIN [Suspect]
     Indication: HEPATITIS C
     Dosage: UNK
     Dates: start: 20050930, end: 200603
  2. RIBAVIRIN [Suspect]
     Dosage: UNK
     Dates: start: 200606, end: 20080627
  3. PEGASYS [Suspect]
     Indication: HEPATITIS C
     Dosage: UNK
     Dates: start: 20050930, end: 200603
  4. PEGASYS [Suspect]
     Dosage: UNK
     Dates: start: 200606, end: 20080627

REACTIONS (24)
  - Renal failure [Unknown]
  - Renal disorder [Unknown]
  - Blood creatinine abnormal [Unknown]
  - Transfusion [Unknown]
  - Nephrolithiasis [Unknown]
  - Ovarian neoplasm [Unknown]
  - Vertigo [Unknown]
  - Eye movement disorder [Unknown]
  - Bronchitis [Unknown]
  - Influenza [Unknown]
  - Vision blurred [Unknown]
  - Asthenia [Unknown]
  - Haemoglobin decreased [Unknown]
  - Dyspnoea [Unknown]
  - Flushing [Unknown]
  - Hyperhidrosis [Unknown]
  - Fatigue [Unknown]
  - Hypertension [Unknown]
  - Sleep apnoea syndrome [Unknown]
  - Swelling [Unknown]
  - Chromaturia [Unknown]
  - Cholelithiasis [Unknown]
  - Weight decreased [Unknown]
  - Adverse event [Unknown]
